FAERS Safety Report 9135735 (Version 1)
Quarter: 2013Q1

REPORT INFORMATION
  Report Type: Spontaneous
  Country: US (occurrence: None)
  Receive Date: 20130227
  Receipt Date: 20130227
  Transmission Date: 20140127
  Serious: Yes (Death, Other)
  Sender: FDA-Public Use
  Company Number: AUR-APL-2013-00766

PATIENT
  Age: 51 Year
  Sex: Female

DRUGS (6)
  1. FLUOXETINE (FLUOXETINE) [Suspect]
  2. CODEINE (CODEINE) [Suspect]
     Route: 048
  3. ACETAMINOPHEN\HYDROCODONE [Suspect]
  4. PROPOXYPHENE (DEXTROPROPOXYPHENE) [Suspect]
  5. ETHANOL (ETHANOL) (UNKNOWN) (ETHANOL) [Suspect]
  6. AMITRIPTYLINE [Suspect]

REACTIONS (3)
  - Drug abuse [None]
  - Cardiac arrest [None]
  - Respiratory arrest [None]
